FAERS Safety Report 19207197 (Version 1)
Quarter: 2021Q2

REPORT INFORMATION
  Report Type: Spontaneous
  Country: US (occurrence: US)
  Receive Date: 20210501
  Receipt Date: 20210501
  Transmission Date: 20210717
  Serious: No
  Sender: FDA-Public Use
  Company Number: US-IGSA-BIG0014227

PATIENT
  Age: 45 Year
  Sex: Female

DRUGS (26)
  1. GAMUNEX?C [Suspect]
     Active Substance: HUMAN IMMUNOGLOBULIN G
     Dosage: UNK
     Dates: start: 202104, end: 202104
  2. GAMUNEX?C [Suspect]
     Active Substance: HUMAN IMMUNOGLOBULIN G
     Dosage: 50 GRAM, Q.2WK.
     Route: 042
  3. ACETAMINOPHEN. [Concomitant]
     Active Substance: ACETAMINOPHEN
  4. AZELASTINE HCL [Concomitant]
     Active Substance: AZELASTINE HYDROCHLORIDE
  5. DIPHENHYDRAMINE HCL [Concomitant]
     Active Substance: DIPHENHYDRAMINE HYDROCHLORIDE
  6. OMEPRAZOLE. [Concomitant]
     Active Substance: OMEPRAZOLE
  7. SENNA?S [DOCUSATE SODIUM;SENNOSIDE A+B] [Concomitant]
  8. GAMUNEX?C [Suspect]
     Active Substance: HUMAN IMMUNOGLOBULIN G
     Indication: MULTIFOCAL MOTOR NEUROPATHY
     Dosage: UNK
     Dates: start: 202104, end: 202104
  9. ASPIRIN 81 [Concomitant]
     Active Substance: ASPIRIN
  10. IRON [Concomitant]
     Active Substance: IRON
  11. FLONASE [Concomitant]
     Active Substance: FLUTICASONE PROPIONATE
  12. VITAMINS NOS [Concomitant]
     Active Substance: VITAMINS
  13. LORATADINE. [Concomitant]
     Active Substance: LORATADINE
  14. METHYLPREDNISOLONE SODIUM PHOSPHATE [Concomitant]
     Active Substance: METHYLPREDNISOLONE SODIUM PHOSPHATE
  15. EPINEPHRINE. [Concomitant]
     Active Substance: EPINEPHRINE
  16. ENTECAVIR. [Concomitant]
     Active Substance: ENTECAVIR
  17. NORMAL SALINE [Concomitant]
     Active Substance: SODIUM CHLORIDE
  18. RESTASIS [Concomitant]
     Active Substance: CYCLOSPORINE
  19. RITUXAN [Concomitant]
     Active Substance: RITUXIMAB
  20. GAMUNEX?C [Suspect]
     Active Substance: HUMAN IMMUNOGLOBULIN G
     Dosage: UNK
  21. ERYTHROMYCIN. [Concomitant]
     Active Substance: ERYTHROMYCIN
  22. AZITHROMYCIN ANHYDROUS. [Concomitant]
     Active Substance: AZITHROMYCIN ANHYDROUS
  23. LEVOTHYROXINE SODIUM. [Concomitant]
     Active Substance: LEVOTHYROXINE SODIUM
  24. PLAQUENIL [Concomitant]
     Active Substance: HYDROXYCHLOROQUINE SULFATE
  25. IMMUNOTHERAPY [Concomitant]
     Active Substance: UNSPECIFIED INGREDIENT
  26. SODIUM CHLORIDE. [Concomitant]
     Active Substance: SODIUM CHLORIDE

REACTIONS (2)
  - Pruritus [Recovered/Resolved]
  - Urticaria [Recovered/Resolved]

NARRATIVE: CASE EVENT DATE: 202104
